FAERS Safety Report 7843382-0 (Version None)
Quarter: 2011Q4

REPORT INFORMATION
  Report Type: 
  Country: None (occurrence: None)
  Receive Date: 20111025
  Receipt Date: 20111011
  Transmission Date: 20120403
  Serious: Yes (Hospitalization, Other)
  Sender: FDA-Public Use
  Company Number: AU-PURDUE-DEU-2011-0007908

PATIENT
  Age: 12 Year
  Sex: Female

DRUGS (9)
  1. MORPHINE SULFATE [Suspect]
     Indication: PAIN IN JAW
  2. BOTULINUM TOXIN [Concomitant]
     Indication: MUSCLE SPASMS
     Dosage: UNK
  3. MUSCLE RELAXANTS [Concomitant]
  4. GABAPENTIN [Concomitant]
  5. MIRTAZAPINE [Concomitant]
     Dosage: 90 MG, DAILY
  6. ANALGESICS [Concomitant]
  7. DIAZEPAM [Concomitant]
  8. TRAMADOL HCL [Suspect]
  9. ANTI-ANXIETY AGENTS [Concomitant]

REACTIONS (4)
  - MEMORY IMPAIRMENT [None]
  - LOWER RESPIRATORY TRACT INFECTION [None]
  - SEDATION [None]
  - CONSTIPATION [None]
